FAERS Safety Report 7716450-1 (Version None)
Quarter: 2011Q3

REPORT INFORMATION
  Report Type: 
  Country: None (occurrence: None)
  Receive Date: 20110829
  Receipt Date: 20110823
  Transmission Date: 20111222
  Serious: Yes (Other)
  Sender: FDA-Public Use
  Company Number: GXKR2011DE02625

PATIENT
  Sex: Male
  Weight: 98 kg

DRUGS (5)
  1. URBASON                                 /GFR/ [Suspect]
     Dosage: 12 MG, UNK
     Route: 065
  2. PREDNISOLONE [Suspect]
     Indication: ARTHRITIS
     Dosage: 50 MG, UNK
     Route: 065
  3. URBASON                                 /GFR/ [Suspect]
     Dosage: 4 MG, BID
     Route: 065
  4. URBASON                                 /GFR/ [Suspect]
     Dosage: 250 MG, UNK
     Route: 065
  5. PANTOPRAZOLE [Concomitant]
     Route: 048

REACTIONS (3)
  - CUSHING'S SYNDROME [None]
  - PRURITUS [None]
  - HICCUPS [None]
